FAERS Safety Report 13938680 (Version 1)
Quarter: 2017Q3

REPORT INFORMATION
  Report Type: Report from Study
  Country: CN (occurrence: CN)
  Receive Date: 20170906
  Receipt Date: 20170906
  Transmission Date: 20171127
  Serious: Yes (Death)
  Sender: FDA-Public Use
  Company Number: CN-ROCHE-1989258

PATIENT

DRUGS (1)
  1. ALTEPLASE. [Suspect]
     Active Substance: ALTEPLASE
     Indication: CEREBRAL INFARCTION
     Dosage: MAXIMUM DOSE: 90MG?-FIRST 10% OF TOTAL DOSE THROUGH VEIN PUSHING INJECTION IN 1 MINUTE, THE REST 90%
     Route: 041

REACTIONS (1)
  - Haemorrhage [Fatal]
